FAERS Safety Report 18264510 (Version 2)
Quarter: 2021Q1

REPORT INFORMATION
  Report Type: Spontaneous
  Country: CA (occurrence: CA)
  Receive Date: 20200914
  Receipt Date: 20210318
  Transmission Date: 20210419
  Serious: Yes (Other)
  Sender: FDA-Public Use
  Company Number: CA-SAMSUNG BIOEPIS-SB-2020-28359

PATIENT
  Age: 57 Year
  Sex: Female

DRUGS (7)
  1. CELEBREX [Concomitant]
     Active Substance: CELECOXIB
     Indication: PRODUCT USED FOR UNKNOWN INDICATION
     Dosage: UNKNOWN
     Route: 048
  2. COSENTYX [Suspect]
     Active Substance: SECUKINUMAB
     Indication: PSORIATIC ARTHROPATHY
     Route: 058
  3. SULFASALAZINE. [Concomitant]
     Active Substance: SULFASALAZINE
     Indication: PRODUCT USED FOR UNKNOWN INDICATION
     Route: 065
  4. ETANERCEPT [Suspect]
     Active Substance: ETANERCEPT
     Indication: PSORIATIC ARTHROPATHY
     Route: 058
  5. ETANERCEPT [Suspect]
     Active Substance: ETANERCEPT
     Route: 058
  6. LEFLUNOMIDE. [Concomitant]
     Active Substance: LEFLUNOMIDE
     Indication: PRODUCT USED FOR UNKNOWN INDICATION
     Route: 065
  7. ETANERCEPT [Suspect]
     Active Substance: ETANERCEPT
     Dosage: UNKNOWN
     Route: 058

REACTIONS (20)
  - Peripheral swelling [Not Recovered/Not Resolved]
  - Anxiety [Not Recovered/Not Resolved]
  - Psoriasis [Not Recovered/Not Resolved]
  - Arthritis [Not Recovered/Not Resolved]
  - Diarrhoea [Not Recovered/Not Resolved]
  - Drug hypersensitivity [Not Recovered/Not Resolved]
  - Erythema [Not Recovered/Not Resolved]
  - Pain [Not Recovered/Not Resolved]
  - Drug ineffective [Not Recovered/Not Resolved]
  - Streptococcal infection [Not Recovered/Not Resolved]
  - Acne [Not Recovered/Not Resolved]
  - Dyshidrotic eczema [Not Recovered/Not Resolved]
  - Enlarged clitoris [Not Recovered/Not Resolved]
  - Infection [Not Recovered/Not Resolved]
  - Infective tenosynovitis [Not Recovered/Not Resolved]
  - Haemochromatosis [Not Recovered/Not Resolved]
  - Localised infection [Not Recovered/Not Resolved]
  - Rash pustular [Not Recovered/Not Resolved]
  - Sensory loss [Not Recovered/Not Resolved]
  - Hypersensitivity [Not Recovered/Not Resolved]
